FAERS Safety Report 6164024-9 (Version None)
Quarter: 2009Q2

REPORT INFORMATION
  Report Type: 
  Country: None (occurrence: None)
  Receive Date: 20090422
  Receipt Date: 20090420
  Transmission Date: 20091009
  Serious: Yes (Hospitalization)
  Sender: FDA-Public Use
  Company Number: US-B.I. PHARMACEUTICALS,INC./RIDGEFIELD-2009-BP-04933BP

PATIENT
  Sex: Female

DRUGS (6)
  1. SPIRIVA [Suspect]
     Indication: CHRONIC OBSTRUCTIVE PULMONARY DISEASE
     Dosage: 18MCG
     Route: 055
     Dates: start: 20040101
  2. VYTORIN [Concomitant]
     Indication: BLOOD CHOLESTEROL INCREASED
     Route: 048
  3. DIOVAN [Concomitant]
     Indication: HYPERTENSION
     Route: 048
  4. CLONIDINE [Concomitant]
     Indication: HYPERTENSION
     Route: 048
  5. PROVENTIL [Concomitant]
     Indication: CHRONIC OBSTRUCTIVE PULMONARY DISEASE
     Route: 048
  6. VICODIN [Concomitant]
     Indication: BACK PAIN
     Route: 048

REACTIONS (1)
  - LUNG NEOPLASM MALIGNANT [None]
